FAERS Safety Report 4653233-3 (Version None)
Quarter: 2005Q2

REPORT INFORMATION
  Report Type: 
  Country: None (occurrence: None)
  Receive Date: 20050505
  Receipt Date: 20050422
  Transmission Date: 20051028
  Serious: Yes (Hospitalization)
  Sender: FDA-Public Use
  Company Number: US-AMGEN-KDL129546

PATIENT
  Sex: Female

DRUGS (17)
  1. PROCRIT [Suspect]
     Indication: RENAL FAILURE CHRONIC
     Route: 058
     Dates: start: 20041101
  2. AMIODARONE [Concomitant]
  3. DORNASE ALFA [Concomitant]
  4. FLOVENT [Concomitant]
     Route: 055
  5. HEPARIN [Concomitant]
     Route: 042
  6. INSULIN [Concomitant]
  7. PREVACID [Concomitant]
  8. SYNTHROID [Concomitant]
  9. PREDNISONE [Concomitant]
  10. TOBRAMYCIN [Concomitant]
     Route: 042
  11. VANCOMYCIN [Concomitant]
  12. EFFEXOR [Concomitant]
  13. ZOLPIDEM TARTRATE [Concomitant]
  14. MEROPENEM [Concomitant]
  15. MIDODRINE HCL [Concomitant]
  16. SELENIUM TRACE METAL ADDITIVE [Concomitant]
  17. NYSTATIN [Concomitant]

REACTIONS (2)
  - DRUG INEFFECTIVE [None]
  - HAEMOGLOBIN DECREASED [None]
